FAERS Safety Report 25666374 (Version 1)
Quarter: 2025Q3

REPORT INFORMATION
  Report Type: Spontaneous
  Country: US (occurrence: None)
  Receive Date: 20250811
  Receipt Date: 20250811
  Transmission Date: 20251021
  Serious: No
  Sender: FDA-CTU
  Company Number: None

PATIENT
  Age: 54 Year
  Sex: Female
  Weight: 78.75 kg

DRUGS (13)
  1. CLIMARA PRO [Suspect]
     Active Substance: ESTRADIOL\LEVONORGESTREL
     Indication: Hormone replacement therapy
     Dosage: OTHER QUANTITY : 1 PATCH(ES);?OTHER FREQUENCY : 1 PER WEEK;?
     Route: 062
     Dates: start: 20250702, end: 20250707
  2. Beekeeper^s Naturals 0.5 mL Propolis Immune Support [Concomitant]
  3. D3/K2 [Concomitant]
  4. VITAMIN C [Concomitant]
     Active Substance: ASCORBIC ACID
  5. OMEGA 3 [Concomitant]
     Active Substance: CAPSAICIN
  6. XLear Nasal Spray [Concomitant]
  7. HERBALS [Concomitant]
     Active Substance: HERBALS
  8. Methlylated B Vitamins [Concomitant]
  9. Tumeric + Ginger tincture [Concomitant]
  10. Bitters [Concomitant]
  11. Liver Support [Concomitant]
  12. Creatine/Taurine [Concomitant]
  13. VITAMINS [Concomitant]
     Active Substance: VITAMINS

REACTIONS (5)
  - Myalgia [None]
  - Arthralgia [None]
  - Insomnia [None]
  - Therapy interrupted [None]
  - Menstruation irregular [None]

NARRATIVE: CASE EVENT DATE: 20250704
